FAERS Safety Report 9115721 (Version 2)
Quarter: 2013Q2

REPORT INFORMATION
  Report Type: Spontaneous
  Country: FR (occurrence: FR)
  Receive Date: 20130225
  Receipt Date: 20130502
  Transmission Date: 20140414
  Serious: Yes (Death)
  Sender: FDA-Public Use
  Company Number: FR-BAXTER-2013BAX006134

PATIENT
  Age: 33 Year
  Sex: Female

DRUGS (8)
  1. ENDOXAN 2000 MG, LYOPHILISAT POUR SOLUTION INJECTABLE [Suspect]
     Indication: BONE MARROW CONDITIONING REGIMEN
     Dosage: 60 MG/KG
     Route: 042
     Dates: start: 20130120, end: 20130121
  2. METHOTREXATE [Concomitant]
     Indication: PROPHYLAXIS AGAINST GRAFT VERSUS HOST DISEASE
     Route: 042
     Dates: start: 20130125, end: 20130130
  3. SANDIMMUN [Concomitant]
     Indication: PROPHYLAXIS AGAINST GRAFT VERSUS HOST DISEASE
     Route: 042
     Dates: start: 20130120, end: 20130208
  4. UROMITEXAN [Concomitant]
     Indication: PRODUCT USED FOR UNKNOWN INDICATION
     Route: 065
  5. ZOPHREN [Concomitant]
     Indication: PRODUCT USED FOR UNKNOWN INDICATION
     Route: 065
  6. CORDARONE [Concomitant]
     Indication: ARRHYTHMIA
     Route: 065
     Dates: start: 20130207
  7. DIGOXINE [Concomitant]
     Indication: ARRHYTHMIA
     Route: 065
     Dates: start: 20130207
  8. NOREPINEPHRINE [Concomitant]
     Indication: ARRHYTHMIA
     Route: 065
     Dates: start: 20130207

REACTIONS (1)
  - Cardiac failure acute [Fatal]
